FAERS Safety Report 5269059-6 (Version None)
Quarter: 2007Q1

REPORT INFORMATION
  Report Type: 
  Country: None (occurrence: None)
  Receive Date: 20070319
  Receipt Date: 20070308
  Transmission Date: 20070707
  Serious: Yes (Disabling)
  Sender: FDA-Public Use
  Company Number: FR-ROCHE-481819

PATIENT
  Age: 45 Year
  Sex: Male
  Weight: 77 kg

DRUGS (2)
  1. PEGASYS [Suspect]
     Indication: HEPATITIS C
     Route: 058
     Dates: start: 20040915, end: 20060312
  2. RIBAVIRIN [Suspect]
     Indication: HEPATITIS C
     Dosage: MEDICATION REPORTED AS RIBAVIRINE.
     Route: 065
     Dates: end: 20060315

REACTIONS (1)
  - TENDONITIS [None]
